FAERS Safety Report 4479931-2 (Version None)
Quarter: 2004Q3

REPORT INFORMATION
  Report Type: 
  Country: None (occurrence: None)
  Receive Date: 20040923
  Receipt Date: 20040819
  Transmission Date: 20050211
  Serious: No
  Sender: FDA-Public Use
  Company Number: USA040669090

PATIENT
  Age: 91 Year
  Sex: Female
  Weight: 50 kg

DRUGS (2)
  1. FORTEO [Suspect]
     Indication: OSTEOPOROSIS
     Dates: start: 20031001, end: 20040803
  2. CALCIUM CARBONATE [Concomitant]

REACTIONS (14)
  - ARTHRALGIA [None]
  - BONE DENSITY DECREASED [None]
  - CHROMATURIA [None]
  - DRUG INEFFECTIVE [None]
  - DYSSTASIA [None]
  - ERYTHEMA [None]
  - JOINT SWELLING [None]
  - MUSCLE CRAMP [None]
  - MUSCLE SPASMS [None]
  - OEDEMA PERIPHERAL [None]
  - PAIN IN EXTREMITY [None]
  - SLEEP DISORDER [None]
  - TENDONITIS [None]
  - URINE ODOUR ABNORMAL [None]
